FAERS Safety Report 4303338-1 (Version None)
Quarter: 2004Q1

REPORT INFORMATION
  Report Type: 
  Country: None (occurrence: None)
  Receive Date: 20040223
  Receipt Date: 20031111
  Transmission Date: 20041129
  Serious: Yes (Other)
  Sender: FDA-Public Use
  Company Number: NO-JNJFOC-20030804084

PATIENT
  Age: 66 Year
  Sex: Female

DRUGS (8)
  1. REMICADE [Suspect]
     Indication: RHEUMATOID ARTHRITIS
     Dosage: 200 MG,  1 IN 1 DAY, INTRAVENOUS
     Route: 042
     Dates: start: 20030805, end: 20030805
  2. METHOTREXATE [Concomitant]
  3. VIOXX [Concomitant]
  4. CALCIGRAN (CALCIGRAN) [Concomitant]
  5. FOSAMAX [Concomitant]
  6. NEXIUM [Concomitant]
  7. PROGYNOVA (ESTRADIOL VALERATE) [Concomitant]
  8. COZAAR [Concomitant]

REACTIONS (1)
  - ERYTHEMA MULTIFORME [None]
